FAERS Safety Report 15097198 (Version 1)
Quarter: 2018Q3

REPORT INFORMATION
  Report Type: Spontaneous
  Country: US (occurrence: US)
  Receive Date: 20180702
  Receipt Date: 20180702
  Transmission Date: 20181010
  Serious: Yes (Other)
  Sender: FDA-Public Use
  Company Number: US-009507513-1806USA012773

PATIENT
  Sex: Female

DRUGS (5)
  1. JANUVIA [Suspect]
     Active Substance: SITAGLIPTIN PHOSPHATE
     Dosage: UNK
     Route: 048
     Dates: start: 20180530
  2. CORTICOSTEROID OPHTHALMIC SOLUTION (UNSPECIFIED) [Suspect]
     Active Substance: CORTICOSTEROID NOS
  3. GABAPENTIN. [Concomitant]
     Active Substance: GABAPENTIN
  4. CORTICOSTEROIDS (UNSPECIFIED) [Suspect]
     Active Substance: UNSPECIFIED INGREDIENT
  5. METFORMIN [Suspect]
     Active Substance: METFORMIN HYDROCHLORIDE
     Route: 048

REACTIONS (5)
  - Blood glucose increased [Unknown]
  - Intraocular pressure increased [Unknown]
  - Blood glucose increased [Unknown]
  - Pancreatitis [Unknown]
  - Back disorder [Unknown]

NARRATIVE: CASE EVENT DATE: 20180627
